FAERS Safety Report 4309650-4 (Version None)
Quarter: 2004Q1

REPORT INFORMATION
  Report Type: 
  Country: None (occurrence: None)
  Receive Date: 20040301
  Receipt Date: 20040217
  Transmission Date: 20041129
  Serious: Yes (Other)
  Sender: FDA-Public Use
  Company Number: 2004199587HK

PATIENT
  Age: 44 Year
  Sex: Male

DRUGS (2)
  1. DELTA-CORTEF [Suspect]
     Indication: NEPHROTIC SYNDROME
     Dosage: SEE IMAGE
  2. AZATHIOPRINE [Suspect]
     Indication: NEPHROTIC SYNDROME
     Dosage: 50 MG, QD

REACTIONS (11)
  - ANKYLOSING SPONDYLITIS [None]
  - CEREBRAL VENOUS THROMBOSIS [None]
  - CERVICAL SPINE FLATTENING [None]
  - FACE OEDEMA [None]
  - HEADACHE [None]
  - MUSCULOSKELETAL STIFFNESS [None]
  - NECK PAIN [None]
  - OEDEMA PERIPHERAL [None]
  - SNEEZING [None]
  - TREATMENT NONCOMPLIANCE [None]
  - VISION BLURRED [None]
